FAERS Safety Report 16243570 (Version 2)
Quarter: 2019Q2

REPORT INFORMATION
  Report Type: Spontaneous
  Country: US (occurrence: US)
  Receive Date: 20190426
  Receipt Date: 20190619
  Transmission Date: 20190711
  Serious: Yes (Hospitalization, Other)
  Sender: FDA-Public Use
  Company Number: US-PFIZER INC-2019168642

PATIENT
  Age: 81 Year
  Sex: Female
  Weight: 73.48 kg

DRUGS (7)
  1. VITAMIN C WITH ROSE HIPS [Concomitant]
     Dosage: UNK
  2. PREMARIN [Suspect]
     Active Substance: ESTROGENS, CONJUGATED
     Dosage: 0.03 MG, DAILY
     Route: 048
  3. CLONIDINE. [Concomitant]
     Active Substance: CLONIDINE
     Indication: BLOOD DISORDER
  4. COLLAGEN [Concomitant]
     Active Substance: COLLAGEN
     Dosage: 1000 ML, DAILY
  5. LOVASTATIN. [Concomitant]
     Active Substance: LOVASTATIN
     Indication: BLOOD DISORDER
  6. PREMARIN [Suspect]
     Active Substance: ESTROGENS, CONJUGATED
     Indication: MENOPAUSE
     Dosage: 1.75 MG, 1X/DAY
     Route: 048
  7. PREMARIN [Suspect]
     Active Substance: ESTROGENS, CONJUGATED
     Indication: INVESTIGATION
     Dosage: UNK
     Dates: end: 201806

REACTIONS (6)
  - Sciatica [Recovering/Resolving]
  - Hair growth abnormal [Unknown]
  - Movement disorder [Unknown]
  - Pain [Recovering/Resolving]
  - Ovarian cyst [Unknown]
  - Therapeutic response unexpected [Unknown]

NARRATIVE: CASE EVENT DATE: 2018
